FAERS Safety Report 9842679 (Version 2)
Quarter: 2014Q1

REPORT INFORMATION
  Report Type: Spontaneous
  Country: US (occurrence: US)
  Receive Date: 20140124
  Receipt Date: 20140312
  Transmission Date: 20141002
  Serious: Yes (Other)
  Sender: FDA-Public Use
  Company Number: PHEH2014US001715

PATIENT
  Sex: Female

DRUGS (19)
  1. VIVELLE DOT [Suspect]
     Dosage: 0.025 MG, UNK
     Route: 062
  2. PREDNISONE [Suspect]
     Dosage: UNK UKN, UNK
  3. FENTANYL [Suspect]
     Dosage: UNK UKN, UNK
  4. MECLOZINE [Concomitant]
     Dosage: UNK UKN, UNK
  5. WELLBUTRIN [Concomitant]
     Dosage: UNK UKN, UNK
  6. NEXIUM//ESOMEPRAZOLE MAGNESIUM [Concomitant]
     Dosage: UNK UKN, UNK
  7. AGGRENOX [Concomitant]
     Dosage: UNK UKN, UNK
  8. XANAX [Concomitant]
     Dosage: UNK UKN, UNK
  9. NEURONTIN [Concomitant]
     Dosage: UNK UKN, UNK
  10. ZETIA [Concomitant]
     Dosage: UNK UKN, UNK
  11. ZOCOR [Concomitant]
     Dosage: UNK UKN, UNK
  12. NORCO [Concomitant]
     Dosage: UNK UKN, UNK
  13. ADVAIR [Concomitant]
     Dosage: UNK UKN, UNK
  14. GLIPIZIDE [Concomitant]
     Dosage: UNK UKN, UNK
  15. POTASSIUM [Concomitant]
     Dosage: UNK UKN, UNK
  16. MAGNESIUM [Concomitant]
     Dosage: UNK UKN, UNK
  17. VITAMIN D [Concomitant]
     Dosage: UNK UKN, UNK
  18. SPIRIVA [Concomitant]
     Dosage: UNK UKN, UNK
  19. ALBUTEROL [Concomitant]
     Dosage: UNK UKN, UNK

REACTIONS (2)
  - Immunodeficiency [Unknown]
  - Weight increased [Unknown]
